FAERS Safety Report 15781743 (Version 1)
Quarter: 2019Q1

REPORT INFORMATION
  Report Type: Spontaneous
  Country: IR (occurrence: IR)
  Receive Date: 20190102
  Receipt Date: 20190102
  Transmission Date: 20190417
  Serious: Yes (Hospitalization, Other)
  Sender: FDA-Public Use
  Company Number: IR-MYLANLABS-2018M1096100

PATIENT
  Age: 53 Year
  Sex: Female

DRUGS (2)
  1. MITOMYCIN. [Suspect]
     Active Substance: MITOMYCIN
     Indication: DIABETIC RETINAL OEDEMA
     Dosage: INADVERTENTLY WAS INJECTED INSTEAD OF BEVACIZUMAB
     Route: 050
  2. AVASTIN                            /00848101/ [Suspect]
     Active Substance: SIMVASTATIN
     Indication: DIABETIC RETINAL OEDEMA
     Dosage: INTRAVITREAL MITOMYCIN INJECTION INSTEAD OF BEVACIZUMAB FOR DIABETIC MACULAR EDEMA
     Route: 050

REACTIONS (19)
  - Retinal degeneration [Unknown]
  - Cataract nuclear [Unknown]
  - Subretinal fluid [Unknown]
  - Accidental exposure to product [Recovering/Resolving]
  - Cataract [Not Recovered/Not Resolved]
  - Optic discs blurred [Unknown]
  - Pupillary reflex impaired [Unknown]
  - Retinal oedema [Recovered/Resolved with Sequelae]
  - Ciliary body disorder [Unknown]
  - Iris atrophy [Not Recovered/Not Resolved]
  - Retinal haemorrhage [Unknown]
  - Necrotising retinitis [Not Recovered/Not Resolved]
  - Corneal oedema [Not Recovered/Not Resolved]
  - Iris disorder [Not Recovered/Not Resolved]
  - Retinal toxicity [Not Recovered/Not Resolved]
  - Red reflex abnormal [Unknown]
  - Retinal artery stenosis [Unknown]
  - Retinal vascular disorder [Unknown]
  - Hypotony of eye [Unknown]
